FAERS Safety Report 5108774-1 (Version None)
Quarter: 2006Q3

REPORT INFORMATION
  Report Type: 
  Country: None (occurrence: None)
  Receive Date: 20060920
  Receipt Date: 20060911
  Transmission Date: 20061208
  Serious: Yes (Hospitalization)
  Sender: FDA-Public Use
  Company Number: PHBS2006DE13763

PATIENT
  Age: 46 Year
  Sex: Male

DRUGS (4)
  1. CARBAMAZEPINE [Suspect]
     Indication: DRUG WITHDRAWAL SYNDROME
     Route: 065
  2. CARBAMAZEPINE [Suspect]
     Dosage: 1000 MG
     Route: 065
  3. VENLAFAXIINE HCL [Concomitant]
     Dosage: 375 MG
     Route: 065
  4. LORAZEPAM [Concomitant]
     Dosage: 5 MG
     Route: 065

REACTIONS (6)
  - DRUG HYPERSENSITIVITY [None]
  - HALLUCINATION, AUDITORY [None]
  - HEPATOCELLULAR DAMAGE [None]
  - PNEUMONIA [None]
  - PYREXIA [None]
  - RASH [None]
